FAERS Safety Report 12109398 (Version 1)
Quarter: 2016Q1

REPORT INFORMATION
  Report Type: Spontaneous
  Country: US (occurrence: None)
  Receive Date: 20160223
  Receipt Date: 20160223
  Transmission Date: 20160526
  Serious: Yes (Other)
  Sender: FDA-Public Use
  Company Number: None

PATIENT
  Age: 81 Year
  Sex: Female
  Weight: 70.31 kg

DRUGS (18)
  1. FLORAZEN 3 [Concomitant]
  2. VITAMIN B12 [Concomitant]
     Active Substance: CYANOCOBALAMIN
  3. RIFEDIPINE ER [Concomitant]
  4. LUTEIN [Concomitant]
     Active Substance: LUTEIN
  5. VIT-A [Concomitant]
  6. OMEPRAZOLE. [Concomitant]
     Active Substance: OMEPRAZOLE
  7. TYLENOL [Concomitant]
     Active Substance: ACETAMINOPHEN
  8. ASA [Concomitant]
     Active Substance: ASPIRIN
  9. TRAMADOL HCL [Concomitant]
     Active Substance: TRAMADOL HYDROCHLORIDE
  10. VITAMIN C [Concomitant]
     Active Substance: ASCORBIC ACID
  11. VIT-D [Concomitant]
  12. BRILINTA [Suspect]
     Active Substance: TICAGRELOR
     Indication: MYOCARDIAL INFARCTION
     Dosage: ONE PILL TWICE DAILY BY MOUTH
     Route: 048
     Dates: start: 201508, end: 20160131
  13. ONE-A-DAY MVA [Concomitant]
  14. LOSARTAN. [Concomitant]
     Active Substance: LOSARTAN
  15. CARVEDILOL. [Concomitant]
     Active Substance: CARVEDILOL
  16. GLYBURIDE. [Concomitant]
     Active Substance: GLYBURIDE
  17. ZANTAC [Concomitant]
     Active Substance: RANITIDINE HYDROCHLORIDE
  18. SOMA [Concomitant]
     Active Substance: CARISOPRODOL

REACTIONS (4)
  - Dizziness [None]
  - Dyspnoea [None]
  - Depressed level of consciousness [None]
  - Asthenia [None]

NARRATIVE: CASE EVENT DATE: 20160127
